FAERS Safety Report 7226103-4 (Version None)
Quarter: 2011Q1

REPORT INFORMATION
  Report Type: 
  Country: None (occurrence: None)
  Receive Date: 20110113
  Receipt Date: 20110106
  Transmission Date: 20110831
  Serious: Yes (Death, Hospitalization, Disabling)
  Sender: FDA-Public Use
  Company Number: US-US-EMD SERONO, INC.-7002805

PATIENT
  Sex: Female
  Weight: 54 kg

DRUGS (16)
  1. BACLOFEN [Concomitant]
  2. LIDODERM [Concomitant]
  3. SENOKOT [Concomitant]
  4. NORVASC [Concomitant]
  5. TEGRETOL [Concomitant]
     Route: 048
  6. FLOMAX [Concomitant]
  7. FENTANYL [Concomitant]
  8. METOPROLOL [Concomitant]
  9. PRILOSEC [Concomitant]
  10. REBIF [Suspect]
     Indication: MULTIPLE SCLEROSIS
     Dates: start: 20060101, end: 20070601
  11. PAXIL [Concomitant]
     Route: 048
  12. MORPHINE [Concomitant]
     Indication: PAIN
  13. TOPAMAX [Concomitant]
     Indication: TRIGEMINAL NEURALGIA
  14. RHINOCORT [Concomitant]
  15. LAMICTAL [Concomitant]
  16. UNSPECIFIED MEDICATION [Concomitant]
     Indication: PAIN

REACTIONS (2)
  - FATIGUE [None]
  - MESOTHELIOMA [None]
